FAERS Safety Report 20687359 (Version 1)
Quarter: 2022Q2

REPORT INFORMATION
  Report Type: Spontaneous
  Country: AU (occurrence: AU)
  Receive Date: 20220408
  Receipt Date: 20220408
  Transmission Date: 20220721
  Serious: Yes (Hospitalization, Other)
  Sender: FDA-Public Use
  Company Number: AU-ATLANTIDE PHARMACEUTICALS AG-2022ATL000013

PATIENT
  Age: 43 Year
  Sex: Male

DRUGS (3)
  1. CEFTRIAXONE [Suspect]
     Active Substance: CEFTRIAXONE
     Indication: Whipple^s disease
     Dosage: 2 GRAM, QD
     Route: 042
  2. Trimethoprim?sulfamethoxazole [Concomitant]
     Indication: Product used for unknown indication
     Dosage: 160/800 MG, BID
     Route: 048
  3. FINASTERIDE [Concomitant]
     Active Substance: FINASTERIDE
     Indication: Androgenetic alopecia
     Route: 065

REACTIONS (1)
  - Jarisch-Herxheimer reaction [Recovered/Resolved]
